FAERS Safety Report 11072813 (Version 1)
Quarter: 2015Q2

REPORT INFORMATION
  Report Type: Spontaneous
  Country: CA (occurrence: CA)
  Receive Date: 20150428
  Receipt Date: 20150428
  Transmission Date: 20150821
  Serious: Yes (Other)
  Sender: FDA-Public Use
  Company Number: CA-ASTRAZENECA-2015SE36950

PATIENT
  Age: 87 Year
  Sex: Male

DRUGS (15)
  1. POTASSIUM CHLORIDE. [Concomitant]
     Active Substance: POTASSIUM CHLORIDE
  2. HCTZ [Concomitant]
     Active Substance: HYDROCHLOROTHIAZIDE
  3. NITRO-DUR [Concomitant]
     Active Substance: NITROGLYCERIN
  4. VENLAFAXINE XR [Concomitant]
     Active Substance: VENLAFAXINE HYDROCHLORIDE
  5. PREVACID [Concomitant]
     Active Substance: LANSOPRAZOLE
  6. SEREVENT DISKUS [Concomitant]
     Active Substance: SALMETEROL XINAFOATE
  7. MERREM [Concomitant]
     Active Substance: MEROPENEM
  8. METOPROLOL [Concomitant]
     Active Substance: METOPROLOL
  9. COLACE [Concomitant]
     Active Substance: DOCUSATE SODIUM
  10. IMOVANE [Concomitant]
     Active Substance: ZOPICLONE
  11. LACTULOSE. [Concomitant]
     Active Substance: LACTULOSE
  12. CRESTOR [Suspect]
     Active Substance: ROSUVASTATIN CALCIUM
     Indication: HYPERCHOLESTEROLAEMIA
     Route: 048
  13. ASA [Concomitant]
     Active Substance: ASPIRIN
  14. TAZOCIN [Concomitant]
     Active Substance: PIPERACILLIN SODIUM\TAZOBACTAM SODIUM
  15. NOVOLIN GE NPH [Concomitant]
     Active Substance: INSULIN BEEF
     Dosage: PENFILL INJ SUS 100U/ML
     Route: 058

REACTIONS (5)
  - Alanine aminotransferase increased [Unknown]
  - Aspartate aminotransferase increased [Unknown]
  - Blood alkaline phosphatase increased [Unknown]
  - Blood lactate dehydrogenase increased [Unknown]
  - Gamma-glutamyltransferase increased [Unknown]
